FAERS Safety Report 5431683-5 (Version None)
Quarter: 2007Q3

REPORT INFORMATION
  Report Type: 
  Country: None (occurrence: None)
  Receive Date: 20070731
  Receipt Date: 20070517
  Transmission Date: 20080115
  Serious: No
  Sender: FDA-Public Use
  Company Number: US200706002480

PATIENT
  Age: 49 Year
  Sex: Female

DRUGS (7)
  1. BYETTA [Suspect]
     Indication: TYPE 2 DIABETES MELLITUS
     Dosage: 5 UG, 2/D, SUBCUTANEOUS; 10 UG, 2/D, SUBCUTANOEUS
     Route: 058
     Dates: start: 20060901, end: 20061101
  2. BYETTA [Suspect]
     Indication: TYPE 2 DIABETES MELLITUS
     Dosage: 5 UG, 2/D, SUBCUTANEOUS; 10 UG, 2/D, SUBCUTANOEUS
     Route: 058
     Dates: start: 20061101
  3. EXENATIDE 5MCG PEN, DISPOSABLE DIVICE (EXENATIDE PEN (5MCG)) PEN,DISPO [Concomitant]
  4. EXENATIDE 10MCG PEN, DISPOSABLE DIVICE (EXENATIDE PEN (10MCG)) PEN,DIS [Concomitant]
  5. VITAMINS [Concomitant]
  6. CALCIUM (CALCIUM) [Concomitant]
  7. METFORMIN HCL [Concomitant]

REACTIONS (1)
  - STOMACH DISCOMFORT [None]
